FAERS Safety Report 23337545 (Version 1)
Quarter: 2023Q4

REPORT INFORMATION
  Report Type: Spontaneous
  Country: US (occurrence: US)
  Receive Date: 20231226
  Receipt Date: 20231226
  Transmission Date: 20240109
  Serious: No
  Sender: FDA-Public Use
  Company Number: US-BEH-2023166763

PATIENT
  Sex: Male

DRUGS (7)
  1. IDELVION [Suspect]
     Active Substance: COAGULATION FACTOR IX RECOMBINANT HUMAN
     Indication: Factor IX deficiency
     Dosage: 10620 INTERNATIONAL UNIT, PRN
     Route: 042
     Dates: start: 20201119
  2. IDELVION [Suspect]
     Active Substance: COAGULATION FACTOR IX RECOMBINANT HUMAN
     Indication: Factor IX deficiency
     Dosage: 10620 INTERNATIONAL UNIT, PRN
     Route: 042
     Dates: start: 20201119
  3. CEPHALEXIN [Concomitant]
     Active Substance: CEPHALEXIN
  4. ACETAMINOPHEN\OXYCODONE HYDROCHLORIDE [Concomitant]
     Active Substance: ACETAMINOPHEN\OXYCODONE HYDROCHLORIDE
  5. HYDROCHLOROTHIAZIDE [Concomitant]
     Active Substance: HYDROCHLOROTHIAZIDE
  6. VITAMINS [Concomitant]
     Active Substance: VITAMINS
  7. IMMUNE ENHANCE [Concomitant]

REACTIONS (2)
  - Wound [Recovered/Resolved]
  - Wound secretion [Recovered/Resolved]
